FAERS Safety Report 7775177-0 (Version None)
Quarter: 2011Q3

REPORT INFORMATION
  Report Type: 
  Country: None (occurrence: None)
  Receive Date: 20110923
  Receipt Date: 20110921
  Transmission Date: 20111222
  Serious: Yes (Hospitalization)
  Sender: FDA-Public Use
  Company Number: ES-BRISTOL-MYERS SQUIBB COMPANY-16082083

PATIENT
  Age: 71 Year
  Sex: Male
  Weight: 80 kg

DRUGS (5)
  1. KYTRIL [Concomitant]
     Indication: PROPHYLAXIS
     Dates: start: 20110228
  2. CAPOTEN [Concomitant]
     Indication: HYPERTENSION
     Dates: start: 20110228
  3. CISPLATIN [Suspect]
     Indication: NON-SMALL CELL LUNG CANCER
     Dosage: RECENT DOSE ON 05MAY2011.
     Route: 042
     Dates: start: 20110228, end: 20110505
  4. BEVACIZUMAB [Suspect]
     Indication: NON-SMALL CELL LUNG CANCER
     Dosage: RECENT DOSE ON 01SEP2011.
     Dates: start: 20110228
  5. PEMETREXED DISODIUM [Suspect]
     Indication: NON-SMALL CELL LUNG CANCER
     Dosage: RECENT DOSE ON 01SEP2011.
     Route: 042
     Dates: start: 20110228

REACTIONS (6)
  - RESPIRATORY TRACT INFECTION [None]
  - PANCYTOPENIA [None]
  - URINARY TRACT INFECTION [None]
  - RECTAL HAEMORRHAGE [None]
  - RESPIRATORY FAILURE [None]
  - DYSPNOEA [None]
